FAERS Safety Report 12675054 (Version 1)
Quarter: 2016Q3

REPORT INFORMATION
  Report Type: Spontaneous
  Country: TW (occurrence: TW)
  Receive Date: 20160823
  Receipt Date: 20160823
  Transmission Date: 20161109
  Serious: Yes (Death, Other)
  Sender: FDA-Public Use
  Company Number: TW-CIPLA LTD.-2016TW14531

PATIENT

DRUGS (2)
  1. IRINOTECAN [Suspect]
     Active Substance: IRINOTECAN
     Indication: PALLIATIVE CARE
     Dosage: 80 MG/M2, WEEKLY
     Route: 065
  2. IRINOTECAN [Suspect]
     Active Substance: IRINOTECAN
     Indication: CHEMOTHERAPY

REACTIONS (3)
  - Febrile neutropenia [Unknown]
  - Drug level increased [Unknown]
  - Septic shock [Fatal]
